FAERS Safety Report 6468803-X (Version None)
Quarter: 2009Q4

REPORT INFORMATION
  Report Type: 
  Country: None (occurrence: None)
  Receive Date: 20091203
  Receipt Date: 20090710
  Transmission Date: 20100525
  Serious: Yes (Hospitalization)
  Sender: FDA-Public Use
  Company Number: US-ELI_LILLY_AND_COMPANY-US200601003514

PATIENT
  Sex: Female
  Weight: 86.167 kg

DRUGS (9)
  1. ZYPREXA [Suspect]
     Indication: BIPOLAR DISORDER
     Dosage: 10 MG, EACH EVENING
     Route: 048
     Dates: start: 20000101, end: 20030310
  2. ZYPREXA [Suspect]
     Dosage: 20 MG, EACH EVENING
     Dates: start: 20030311, end: 20040105
  3. ZYPREXA [Suspect]
     Dosage: 30 MG, EACH EVENING
     Dates: start: 20040106, end: 20040420
  4. ZYPREXA [Suspect]
     Dosage: 20 MG, UNK
     Dates: start: 20040421
  5. ZYPREXA [Suspect]
     Dosage: 15 MG, EACH EVENING
  6. SYMBYAX [Suspect]
     Dosage: 1 D/F, UNK
  7. PROZAC [Concomitant]
     Dosage: 10 MG, DAILY (1/D)
  8. SEROQUEL [Concomitant]
     Dosage: 200 MG, EACH EVENING
  9. DEPAKOTE [Concomitant]
     Dosage: 1500 MG, EACH EVENING

REACTIONS (24)
  - ALANINE AMINOTRANSFERASE INCREASED [None]
  - BLOOD CHLORIDE DECREASED [None]
  - BLOOD CHOLESTEROL INCREASED [None]
  - BLOOD POTASSIUM ABNORMAL [None]
  - BLOOD POTASSIUM DECREASED [None]
  - BLOOD SODIUM DECREASED [None]
  - BLOOD TRIGLYCERIDES INCREASED [None]
  - BLOOD UREA DECREASED [None]
  - BLOOD UREA NITROGEN/CREATININE RATIO DECREASED [None]
  - HAEMATOCRIT INCREASED [None]
  - HAEMOGLOBIN INCREASED [None]
  - HYPERTENSION [None]
  - MIGRAINE [None]
  - MONOCYTE COUNT INCREASED [None]
  - OBESITY [None]
  - OEDEMA PERIPHERAL [None]
  - OVERDOSE [None]
  - PALPITATIONS [None]
  - RED BLOOD CELL COUNT INCREASED [None]
  - SINUS TACHYCARDIA [None]
  - TYPE 1 DIABETES MELLITUS [None]
  - TYPE 2 DIABETES MELLITUS [None]
  - WEIGHT INCREASED [None]
  - WHITE BLOOD CELL COUNT INCREASED [None]
